APPROVED DRUG PRODUCT: CEFADROXIL
Active Ingredient: CEFADROXIL/CEFADROXIL HEMIHYDRATE
Strength: EQ 1GM BASE
Dosage Form/Route: TABLET;ORAL
Application: A065260 | Product #001
Applicant: HIKMA PHARMACEUTICALS
Approved: Mar 30, 2006 | RLD: No | RS: No | Type: DISCN